FAERS Safety Report 13351709 (Version 3)
Quarter: 2017Q2

REPORT INFORMATION
  Report Type: Spontaneous
  Country: US (occurrence: US)
  Receive Date: 20170320
  Receipt Date: 20170504
  Transmission Date: 20170830
  Serious: No
  Sender: FDA-Public Use
  Company Number: US-GILEAD-2017-0262750

PATIENT
  Age: 60 Year
  Sex: Male

DRUGS (2)
  1. ZYDELIG [Suspect]
     Active Substance: IDELALISIB
     Indication: CHRONIC LYMPHOCYTIC LEUKAEMIA
     Dosage: 150 MG, BID
     Route: 048
     Dates: start: 20161128
  2. ZYDELIG [Suspect]
     Active Substance: IDELALISIB
     Dosage: 200 MG, UNK
     Route: 048
     Dates: start: 20170130

REACTIONS (1)
  - Diarrhoea [Not Recovered/Not Resolved]
